FAERS Safety Report 17774334 (Version 1)
Quarter: 2020Q2

REPORT INFORMATION
  Report Type: Spontaneous
  Country: US (occurrence: US)
  Receive Date: 20200513
  Receipt Date: 20200513
  Transmission Date: 20200714
  Serious: Yes (Disabling, Other)
  Sender: FDA-Public Use
  Company Number: US-SA-2020SA120566

PATIENT

DRUGS (1)
  1. ZANTAC 75 [Suspect]
     Active Substance: RANITIDINE HYDROCHLORIDE
     Indication: DYSPEPSIA

REACTIONS (4)
  - Plasma cell myeloma [Unknown]
  - Arthralgia [Unknown]
  - Pelvic bone injury [Unknown]
  - Gait inability [Unknown]

NARRATIVE: CASE EVENT DATE: 2014
